FAERS Safety Report 24018215 (Version 1)
Quarter: 2024Q2

REPORT INFORMATION
  Report Type: Spontaneous
  Country: US (occurrence: US)
  Receive Date: 20240627
  Receipt Date: 20240627
  Transmission Date: 20240716
  Serious: No
  Sender: FDA-Public Use
  Company Number: US-IPSEN Group, Research and Development-2024-12695

PATIENT
  Age: 77 Year
  Sex: Female

DRUGS (1)
  1. TAZVERIK [Suspect]
     Active Substance: TAZEMETOSTAT HYDROBROMIDE
     Indication: Follicular lymphoma stage II
     Dosage: 4 TABLETS (800MG) ORALLY TWICE DAIL
     Route: 048
     Dates: start: 2023

REACTIONS (1)
  - Vaginal infection [Unknown]
